FAERS Safety Report 6525410-8 (Version None)
Quarter: 2009Q4

REPORT INFORMATION
  Report Type: 
  Country: None (occurrence: None)
  Receive Date: 20091222
  Receipt Date: 20091217
  Transmission Date: 20100525
  Serious: Yes (Other)
  Sender: FDA-Public Use
  Company Number: 2009029721

PATIENT
  Sex: Female

DRUGS (1)
  1. PROVIGIL [Suspect]
     Dosage: 200 MG (200 MG, 1 IN 1 D), ORAL
     Route: 048

REACTIONS (2)
  - AMNIOTIC FLUID VOLUME DECREASED [None]
  - DRUG EXPOSURE DURING PREGNANCY [None]
